FAERS Safety Report 13147992 (Version 3)
Quarter: 2019Q1

REPORT INFORMATION
  Report Type: Report from Study
  Country: US (occurrence: US)
  Receive Date: 20170125
  Receipt Date: 20190131
  Transmission Date: 20190417
  Serious: Yes (Disabling, Other)
  Sender: FDA-Public Use
  Company Number: US-ROCHE-1765443

PATIENT
  Age: 77 Year
  Sex: Female
  Weight: 47.67 kg

DRUGS (11)
  1. LUCENTIS [Suspect]
     Active Substance: RANIBIZUMAB
     Indication: NEOVASCULAR AGE-RELATED MACULAR DEGENERATION
     Dosage: LEFT EYE
     Route: 050
     Dates: start: 201209
  2. AVASTIN [Suspect]
     Active Substance: BEVACIZUMAB
     Route: 065
     Dates: start: 20160113, end: 201602
  3. LUCENTIS [Suspect]
     Active Substance: RANIBIZUMAB
     Dosage: BILATERALLY, ONGOING NO
     Route: 050
     Dates: start: 2013
  4. LUCENTIS [Suspect]
     Active Substance: RANIBIZUMAB
     Route: 050
     Dates: start: 201210, end: 2014
  5. LUCENTIS [Suspect]
     Active Substance: RANIBIZUMAB
     Dosage: ONGOING:YES
     Route: 050
     Dates: start: 2012
  6. AVASTIN [Suspect]
     Active Substance: BEVACIZUMAB
     Dosage: RIGHT EYE, ONGOING NO
     Route: 050
     Dates: start: 201602, end: 20160228
  7. LUCENTIS [Suspect]
     Active Substance: RANIBIZUMAB
     Dosage: ONGOING: NO
     Route: 050
     Dates: start: 201605
  8. AVASTIN [Suspect]
     Active Substance: BEVACIZUMAB
     Indication: NEOVASCULAR AGE-RELATED MACULAR DEGENERATION
     Route: 065
     Dates: start: 20160210
  9. LUCENTIS [Suspect]
     Active Substance: RANIBIZUMAB
     Dosage: RIGHT EYE
     Route: 050
  10. LUCENTIS [Suspect]
     Active Substance: RANIBIZUMAB
     Dosage: LEFT EYE, ONGOING YES
     Route: 050
     Dates: start: 201701
  11. EYLEA [Concomitant]
     Active Substance: AFLIBERCEPT
     Indication: MACULAR DEGENERATION

REACTIONS (16)
  - Eye infection [Recovered/Resolved]
  - Hypersensitivity [Not Recovered/Not Resolved]
  - Off label use [Unknown]
  - Ocular hyperaemia [Unknown]
  - Eye injury [Not Recovered/Not Resolved]
  - Conjunctivitis [Recovered/Resolved]
  - Scar [Not Recovered/Not Resolved]
  - Blindness unilateral [Recovered/Resolved]
  - Eye disorder [Not Recovered/Not Resolved]
  - Eye discharge [Unknown]
  - Drug ineffective [Unknown]
  - Vision blurred [Recovered/Resolved]
  - Intentional product use issue [Unknown]
  - Eye disorder [Unknown]
  - Eye disorder [Recovered/Resolved]
  - Infection [Recovered/Resolved with Sequelae]

NARRATIVE: CASE EVENT DATE: 201602
